FAERS Safety Report 8730964 (Version 2)
Quarter: 2012Q4

REPORT INFORMATION
  Report Type: Spontaneous
  Country: US (occurrence: None)
  Receive Date: 20120801
  Receipt Date: 20121001
  Transmission Date: 20130627
  Serious: Yes (Disabling)
  Sender: FDA-Public Use
  Company Number: JPI-P-022789

PATIENT
  Age: 48 Year
  Sex: Female

DRUGS (1)
  1. XYREM [Suspect]
     Indication: CATAPLEXY
     Dosage: 4.5 GM (2.25 GM, 2 IN 1 D), ORAL
     Route: 048
     Dates: start: 20090604

REACTIONS (1)
  - HAND FRACTURE [None]
